FAERS Safety Report 5583633-9 (Version None)
Quarter: 2007Q4

REPORT INFORMATION
  Report Type: 
  Country: None (occurrence: None)
  Receive Date: 20071231
  Receipt Date: 20071218
  Transmission Date: 20080405
  Serious: Yes (Hospitalization)
  Sender: FDA-Public Use
  Company Number: 2007BI022617

PATIENT
  Age: 60 Year
  Sex: Female
  Weight: 61.2356 kg

DRUGS (5)
  1. AVONEX [Suspect]
     Indication: MULTIPLE SCLEROSIS
     Dosage: 30 UG; QW; IM
     Route: 030
     Dates: start: 20050601
  2. FOSAMAX [Concomitant]
  3. LOVASTATIN [Concomitant]
  4. ALPRAZOLAM [Concomitant]
  5. IBUPROFEN [Concomitant]

REACTIONS (6)
  - BURNING SENSATION [None]
  - CONDITION AGGRAVATED [None]
  - MULTIPLE SCLEROSIS [None]
  - OSTEOARTHRITIS [None]
  - PROCEDURAL PAIN [None]
  - PYREXIA [None]
